FAERS Safety Report 9103483 (Version 3)
Quarter: 2013Q2

REPORT INFORMATION
  Report Type: Spontaneous
  Country: US (occurrence: US)
  Receive Date: 20130219
  Receipt Date: 20130613
  Transmission Date: 20140414
  Serious: Yes (Hospitalization)
  Sender: FDA-Public Use
  Company Number: US-GLAXOSMITHKLINE-A1012713A

PATIENT
  Age: 65 Year
  Sex: Female
  Weight: 127.3 kg

DRUGS (1)
  1. AVANDAMET [Suspect]
     Indication: PRODUCT USED FOR UNKNOWN INDICATION
     Route: 048
     Dates: start: 2010

REACTIONS (5)
  - Breast cancer [Unknown]
  - Thyroidectomy [Unknown]
  - Alopecia [Unknown]
  - Local swelling [Unknown]
  - Overweight [Unknown]
